FAERS Safety Report 23946918 (Version 1)
Quarter: 2024Q2

REPORT INFORMATION
  Report Type: Spontaneous
  Country: US (occurrence: None)
  Receive Date: 20240606
  Receipt Date: 20240606
  Transmission Date: 20240716
  Serious: Yes (Hospitalization)
  Sender: FDA-Public Use
  Company Number: None

PATIENT
  Age: 54 Year
  Sex: Female

DRUGS (5)
  1. SKYRIZI [Suspect]
     Active Substance: RISANKIZUMAB-RZAA
     Dosage: OTHER FREQUENCY : ONE PEN EVERY 12 W;?
     Route: 058
     Dates: start: 20220720
  2. ATORVASTATIN [Concomitant]
     Active Substance: ATORVASTATIN
  3. METOPROLOL SUCCINATE [Concomitant]
     Active Substance: METOPROLOL SUCCINATE
  4. DULOXETINE [Concomitant]
     Active Substance: DULOXETINE
  5. PROAIR HFA [Concomitant]

REACTIONS (1)
  - Pneumonia [None]

NARRATIVE: CASE EVENT DATE: 20240527
